FAERS Safety Report 9320422 (Version 2)
Quarter: 2013Q3

REPORT INFORMATION
  Report Type: Spontaneous
  Country: US (occurrence: US)
  Receive Date: 20130530
  Receipt Date: 20130920
  Transmission Date: 20140515
  Serious: Yes (Hospitalization)
  Sender: FDA-Public Use
  Company Number: US-B.I. PHARMACEUTICALS,INC./RIDGEFIELD-2013-BI-14587BP

PATIENT
  Age: 88 Year
  Sex: Female
  Weight: 7.31 kg

DRUGS (17)
  1. PRADAXA [Suspect]
     Indication: ATRIAL FIBRILLATION
     Dosage: 300 MG
     Dates: start: 20110524, end: 20111210
  2. LASIX [Concomitant]
     Dosage: 20 MG
  3. ACIPHEX [Concomitant]
     Dosage: 20 MG
  4. PREDNISONE [Concomitant]
     Dosage: 10 MG
  5. DIGOXIN [Concomitant]
     Dosage: 0.125 MG
  6. DILTIAZEM [Concomitant]
     Dosage: 180 MG
  7. LOVAZA [Concomitant]
     Dosage: 4 G
  8. XANAX [Concomitant]
     Indication: ANXIETY
  9. NITROGLYCERIN [Concomitant]
  10. MESTINON [Concomitant]
     Dosage: 90 MG
  11. MESTINON [Concomitant]
     Dosage: 30 MG
  12. MIRALAX [Concomitant]
     Indication: CONSTIPATION
  13. VITAMIN D [Concomitant]
  14. CELEXA [Concomitant]
     Dosage: 20 MG
  15. NITROFURANTOIN [Concomitant]
     Dosage: 50 MG
  16. IRON GLYCINATE [Concomitant]
     Dosage: 28 MG
  17. VITAMIN B12 [Concomitant]
     Dosage: 6000 MCG
     Route: 048

REACTIONS (1)
  - Lower gastrointestinal haemorrhage [Recovered/Resolved]
